FAERS Safety Report 5104121-X (Version None)
Quarter: 2006Q3

REPORT INFORMATION
  Report Type: 
  Country: None (occurrence: None)
  Receive Date: 20060913
  Receipt Date: 20060904
  Transmission Date: 20061208
  Serious: Yes (Other)
  Sender: FDA-Public Use
  Company Number: DE-MERCK-0609DEU00015

PATIENT
  Age: 76 Year
  Sex: Male

DRUGS (2)
  1. PROSCAR [Suspect]
     Indication: BENIGN PROSTATIC HYPERPLASIA
     Route: 048
     Dates: start: 19960530, end: 20060401
  2. [THERAPY UNSPECIFIED] [Concomitant]
     Indication: HYPERTENSION
     Route: 065

REACTIONS (4)
  - BREAST DISCOMFORT [None]
  - BREAST PAIN [None]
  - GYNAECOMASTIA [None]
  - TESTIS CANCER [None]
